FAERS Safety Report 7464760-8 (Version None)
Quarter: 2011Q2

REPORT INFORMATION
  Report Type: 
  Country: None (occurrence: None)
  Receive Date: 20110509
  Receipt Date: 20110428
  Transmission Date: 20111010
  Serious: Yes (Other)
  Sender: FDA-Public Use
  Company Number: US-US-EMD SERONO, INC.-7056291

PATIENT
  Sex: Female

DRUGS (2)
  1. REBIF [Suspect]
     Indication: PRODUCT USED FOR UNKNOWN INDICATION
     Route: 058
     Dates: end: 20101001
  2. UNSPECIFIED MEDICATIONS [Concomitant]
     Dates: end: 20101001

REACTIONS (2)
  - IMMUNOSUPPRESSION [None]
  - EAR INFECTION [None]
